FAERS Safety Report 5192135-3 (Version None)
Quarter: 2006Q4

REPORT INFORMATION
  Report Type: 
  Country: None (occurrence: None)
  Receive Date: 20061220
  Receipt Date: 20061215
  Transmission Date: 20070319
  Serious: Yes (Hospitalization, Other)
  Sender: FDA-Public Use
  Company Number: 2006SP003463

PATIENT
  Age: 71 Year
  Sex: Female
  Weight: 62 kg

DRUGS (9)
  1. INTRON A [Suspect]
     Indication: RENAL CELL CARCINOMA STAGE UNSPECIFIED
     Dosage: 6 MIU; IM
     Route: 030
     Dates: start: 20060301, end: 20060901
  2. SUMIFERON [Concomitant]
  3. BUP-4 [Concomitant]
  4. TAGAMET [Concomitant]
  5. LOXONIN [Concomitant]
  6. PRAVASTATIN SODIUM [Concomitant]
  7. AMARYL [Concomitant]
  8. MUCOSOLVAN [Concomitant]
  9. MUCODYNE [Concomitant]

REACTIONS (2)
  - PLEURAL EFFUSION [None]
  - PLEURISY [None]
